FAERS Safety Report 17890459 (Version 1)
Quarter: 2020Q2

REPORT INFORMATION
  Report Type: Spontaneous
  Country: US (occurrence: US)
  Receive Date: 20200612
  Receipt Date: 20200612
  Transmission Date: 20200714
  Serious: No
  Sender: FDA-Public Use
  Company Number: US-PERRIGO-19US011425

PATIENT
  Age: 65 Year
  Sex: Male
  Weight: 101.13 kg

DRUGS (3)
  1. AZELASTINE HYDROCHLORIDE. [Suspect]
     Active Substance: AZELASTINE HYDROCHLORIDE
     Indication: HYPERSENSITIVITY
     Dosage: 1 SPRAY, BID
     Route: 045
     Dates: start: 2014, end: 20190908
  2. AZELASTINE HYDROCHLORIDE. [Suspect]
     Active Substance: AZELASTINE HYDROCHLORIDE
     Dosage: 1 SPRAY, BID
     Route: 045
     Dates: start: 20190909, end: 201909
  3. AZELASTINE HYDROCHLORIDE. [Suspect]
     Active Substance: AZELASTINE HYDROCHLORIDE
     Dosage: 1 SPRAY, BID
     Route: 045
     Dates: start: 201909

REACTIONS (2)
  - Malaise [Recovering/Resolving]
  - Dyspnoea [Recovering/Resolving]

NARRATIVE: CASE EVENT DATE: 20190914
